FAERS Safety Report 14190504 (Version 2)
Quarter: 2018Q1

REPORT INFORMATION
  Report Type: Spontaneous
  Country: JP (occurrence: JP)
  Receive Date: 20171115
  Receipt Date: 20180208
  Transmission Date: 20180508
  Serious: Yes (Death, Life-Threatening, Hospitalization, Other)
  Sender: FDA-Public Use
  Company Number: JP-JNJFOC-20171114279

PATIENT
  Age: 80 Year
  Sex: Male
  Weight: 47.7 kg

DRUGS (10)
  1. XARELTO [Suspect]
     Active Substance: RIVAROXABAN
     Indication: ATRIAL FIBRILLATION
     Route: 048
     Dates: start: 20150622, end: 20150728
  2. PURSENNID [Concomitant]
     Active Substance: SENNOSIDES A AND B
     Indication: CONSTIPATION
     Route: 048
     Dates: start: 20150609, end: 20150609
  3. LOXOPROFEN SODIUM [Concomitant]
     Active Substance: LOXOPROFEN SODIUM
     Indication: INFLAMMATION
     Route: 048
     Dates: start: 20150611, end: 20150615
  4. LOXOPROFEN SODIUM [Concomitant]
     Active Substance: LOXOPROFEN SODIUM
     Indication: INFLAMMATION
     Route: 048
     Dates: start: 20150727, end: 20150728
  5. CEFCAPENE PIVOXIL HYDROCHLORIDE [Concomitant]
     Active Substance: CEFCAPENE PIVOXIL HYDROCHLORIDE
     Indication: INFLAMMATION
     Route: 048
     Dates: start: 20150727, end: 20150728
  6. XARELTO [Suspect]
     Active Substance: RIVAROXABAN
     Indication: ATRIAL FIBRILLATION
     Route: 048
     Dates: start: 20150729, end: 20150731
  7. CEFDINIR. [Concomitant]
     Active Substance: CEFDINIR
     Indication: INFECTION PROPHYLAXIS
     Route: 048
     Dates: start: 20150606, end: 20150608
  8. BISOLVON [Concomitant]
     Active Substance: BROMHEXINE HYDROCHLORIDE
     Indication: INFLAMMATION
     Route: 048
     Dates: start: 20150727, end: 20150728
  9. LOXOPROFEN SODIUM [Concomitant]
     Active Substance: LOXOPROFEN SODIUM
     Indication: INFLAMMATION
     Route: 048
     Dates: start: 20150626, end: 20150702
  10. CRAVIT [Concomitant]
     Active Substance: LEVOFLOXACIN
     Indication: INFECTION PROPHYLAXIS
     Route: 048
     Dates: start: 20150613, end: 20150615

REACTIONS (7)
  - Cardio-respiratory arrest [Recovered/Resolved]
  - Myocardial infarction [Unknown]
  - Thrombolysis [Unknown]
  - Respiratory failure [Unknown]
  - Arrhythmia [Unknown]
  - Acute interstitial pneumonitis [Fatal]
  - Acute myocardial infarction [Fatal]

NARRATIVE: CASE EVENT DATE: 20150723
